FAERS Safety Report 9180557 (Version 2)
Quarter: 2013Q2

REPORT INFORMATION
  Report Type: Spontaneous
  Country: GB (occurrence: GB)
  Receive Date: 20130322
  Receipt Date: 20130430
  Transmission Date: 20140414
  Serious: Yes (Hospitalization, Other)
  Sender: FDA-Public Use
  Company Number: GB-009507513-1303GBR008201

PATIENT
  Sex: Male

DRUGS (9)
  1. ISENTRESS [Suspect]
     Dosage: UNK
  2. TRUVADA [Concomitant]
     Indication: HIV INFECTION
  3. RETROVIR [Concomitant]
     Indication: HIV INFECTION
  4. DARUNAVIR [Concomitant]
     Indication: HIV INFECTION
  5. VORICONAZOLE [Concomitant]
  6. SULFAMETHOXAZOLE (+) TRIMETHOPRIM [Concomitant]
  7. PROPANTHELINE BROMIDE [Concomitant]
  8. NOREPINEPHRINE [Concomitant]
  9. TRIMETHOPRIM [Concomitant]

REACTIONS (2)
  - Burkitt^s lymphoma [Unknown]
  - Mechanical ventilation [Unknown]
